FAERS Safety Report 9928441 (Version 1)
Quarter: 2014Q1

REPORT INFORMATION
  Report Type: Spontaneous
  Country: US (occurrence: None)
  Receive Date: 20140224
  Receipt Date: 20140224
  Transmission Date: 20141002
  Serious: Yes (Other)
  Sender: FDA-Public Use
  Company Number: AUR-APL-2014-01908

PATIENT
  Age: 25 Year
  Sex: Female
  Weight: 80 kg

DRUGS (4)
  1. LAMOTRIGINE (LAMOTRIGINE) [Suspect]
     Indication: BIPOLAR DISORDER
     Route: 048
     Dates: start: 20120505, end: 20130124
  2. VENLAFAXINE [Suspect]
     Indication: DEPRESSION
     Route: 048
     Dates: start: 20120505, end: 20130124
  3. VOMEX A [Suspect]
     Indication: VOMITING IN PREGNANCY
     Route: 048
  4. FOLSAURE [Suspect]

REACTIONS (2)
  - Premature rupture of membranes [None]
  - Ventouse extraction [None]
